FAERS Safety Report 8376862-2 (Version None)
Quarter: 2012Q2

REPORT INFORMATION
  Report Type: 
  Country: None (occurrence: None)
  Receive Date: 20120522
  Receipt Date: 20120518
  Transmission Date: 20120825
  Serious: Yes (Life-Threatening)
  Sender: FDA-Public Use
  Company Number: GB-PFIZER INC-2012120822

PATIENT
  Age: 64 Year
  Sex: Male
  Weight: 103.42 kg

DRUGS (20)
  1. LANSOPRAZOLE [Concomitant]
     Dates: start: 20120207
  2. LANTUS [Concomitant]
     Dates: start: 20120207
  3. LOPERAMIDE [Concomitant]
     Dates: start: 20120301, end: 20120304
  4. FLUTICASONE PROPIONATE/SALMETEROL [Concomitant]
     Dates: start: 20120207
  5. ZOPICLONE [Concomitant]
     Dates: start: 20120207
  6. VENTOLIN [Concomitant]
     Dates: start: 20120403, end: 20120501
  7. LISINOPRIL [Concomitant]
     Dates: start: 20120207
  8. GABAPENTIN [Concomitant]
     Dates: start: 20120207
  9. FUROSEMIDE [Concomitant]
     Dates: start: 20120207
  10. NOVORAPID [Concomitant]
     Dates: start: 20120207
  11. PAROXETINE [Concomitant]
     Dates: start: 20120112
  12. ATORVASTATIN CALCIUM [Concomitant]
     Dates: start: 20120207
  13. ACETYLSALICYLIC ACID [Concomitant]
     Dates: start: 20120207
  14. LOPERAMIDE [Concomitant]
     Dates: start: 20120207, end: 20120210
  15. LOPERAMIDE [Concomitant]
     Dates: start: 20120427, end: 20120430
  16. ACETAMINOPHEN [Concomitant]
     Dates: start: 20120207
  17. LOPERAMIDE [Concomitant]
     Dates: start: 20120403, end: 20120406
  18. SPIRONOLACTONE [Suspect]
     Dates: start: 20120207
  19. CODEINE PHOSPHATE [Concomitant]
     Dates: start: 20120207
  20. CHLORAMPHENICOL [Concomitant]
     Dates: start: 20120220, end: 20120221

REACTIONS (1)
  - HYPERKALAEMIA [None]
